FAERS Safety Report 19807760 (Version 1)
Quarter: 2021Q3

REPORT INFORMATION
  Report Type: Spontaneous
  Country: US (occurrence: US)
  Receive Date: 20210908
  Receipt Date: 20210908
  Transmission Date: 20211014
  Serious: Yes (Hospitalization, Other)
  Sender: FDA-Public Use
  Company Number: None

PATIENT
  Age: 70 Year
  Sex: Male
  Weight: 57.6 kg

DRUGS (1)
  1. AXICABTAGENE CILOLEUCEL [Suspect]
     Active Substance: AXICABTAGENE CILOLEUCEL
     Indication: DIFFUSE LARGE B-CELL LYMPHOMA
     Dosage: ?          OTHER FREQUENCY:ONCE;?
     Route: 042
     Dates: start: 20210726

REACTIONS (9)
  - Candida infection [None]
  - Cytokine release syndrome [None]
  - Urinary retention [None]
  - Erythema [None]
  - White blood cell count increased [None]
  - Neurotoxicity [None]
  - Constipation [None]
  - Vomiting [None]
  - Pain in extremity [None]

NARRATIVE: CASE EVENT DATE: 20210731
